FAERS Safety Report 7479396 (Version 2)
Quarter: 2012Q4

REPORT INFORMATION
  Report Type: Report from Study
  Country: NO (occurrence: NO)
  Receive Date: 20100716
  Receipt Date: 20121221
  Transmission Date: 20130627
  Serious: Yes (Death, Hospitalization, Other)
  Sender: FDA-Public Use
  Company Number: NO-SANOFI-AVENTIS-2010SA040871

PATIENT
  Age: 69 Year
  Sex: Male

DRUGS (11)
  1. TAXOTERE [Suspect]
     Indication: PROSTATE CANCER
     Dosage: every 3 weeks
     Route: 041
     Dates: start: 20091106, end: 20091106
  2. TAXOTERE [Suspect]
     Indication: PROSTATE CANCER
     Dosage: every 3 weeks
     Route: 041
  3. BLINDED THERAPY [Suspect]
     Indication: PROSTATE CANCER
     Route: 048
     Dates: start: 20091106, end: 20100511
  4. PREDNISONE [Suspect]
     Indication: PROSTATE CANCER
     Route: 048
     Dates: start: 20091106, end: 2010
  5. WARFARIN [Concomitant]
     Dates: start: 199802
  6. VERAPAMIL [Concomitant]
     Dates: start: 199802
  7. LANSOPRAZOLE [Concomitant]
     Dates: start: 200711
  8. LEUPRORELIN [Concomitant]
     Dates: start: 200606
  9. DEXAMETHASONE [Concomitant]
     Dates: start: 20091106, end: 20100427
  10. BUMETANIDE [Concomitant]
     Dates: start: 20100129
  11. ONDANSETRON [Concomitant]
     Dates: start: 20091106, end: 20100427

REACTIONS (4)
  - Death [Fatal]
  - Pulmonary hypertension [Recovered/Resolved]
  - Right ventricular dysfunction [Not Recovered/Not Resolved]
  - Pleural effusion [Recovered/Resolved]
